FAERS Safety Report 20190574 (Version 1)
Quarter: 2021Q4

REPORT INFORMATION
  Report Type: Spontaneous
  Country: US (occurrence: None)
  Receive Date: 20211216
  Receipt Date: 20211216
  Transmission Date: 20220304
  Serious: No
  Sender: FDA-Public Use
  Company Number: US-MDD US Operations-2021SUP00030

PATIENT
  Age: 55 Year
  Sex: Female

DRUGS (1)
  1. TROKENDI XR [Suspect]
     Active Substance: TOPIRAMATE

REACTIONS (2)
  - Gastrooesophageal reflux disease [Unknown]
  - Abdominal pain [Unknown]
